FAERS Safety Report 9469794 (Version 3)
Quarter: 2013Q4

REPORT INFORMATION
  Report Type: Report from Study
  Country: US (occurrence: US)
  Receive Date: 20130822
  Receipt Date: 20131030
  Transmission Date: 20140711
  Serious: No
  Sender: FDA-Public Use
  Company Number: US-JNJFOC-20130807145

PATIENT
  Sex: Female

DRUGS (3)
  1. REMICADE [Suspect]
     Indication: COLITIS ULCERATIVE
     Route: 042
     Dates: start: 201004, end: 201307
  2. LIALDA [Concomitant]
     Indication: COLITIS ULCERATIVE
     Route: 065
  3. CELEBREX [Concomitant]
     Indication: ARTHRITIS
     Route: 065

REACTIONS (5)
  - Arthritis [Recovered/Resolved]
  - Drug hypersensitivity [Unknown]
  - Colitis ulcerative [Recovering/Resolving]
  - Drug specific antibody present [Unknown]
  - Drug ineffective [Recovering/Resolving]
